FAERS Safety Report 24857554 (Version 1)
Quarter: 2025Q1

REPORT INFORMATION
  Report Type: Spontaneous
  Country: UY (occurrence: UY)
  Receive Date: 20250117
  Receipt Date: 20250117
  Transmission Date: 20250409
  Serious: Yes (Hospitalization, Other)
  Sender: MERCK
  Company Number: UY-009507513-2501URY004286

PATIENT
  Age: 61 Year
  Sex: Female

DRUGS (1)
  1. KEYTRUDA [Suspect]
     Active Substance: PEMBROLIZUMAB
     Indication: Breast cancer
     Dosage: 200 MILLIGRAM, Q3W

REACTIONS (4)
  - Encephalitis [Unknown]
  - Pneumonitis [Unknown]
  - Hypothyroidism [Unknown]
  - Skin lesion [Unknown]
